FAERS Safety Report 10453560 (Version 1)
Quarter: 2014Q3

REPORT INFORMATION
  Report Type: Spontaneous
  Country: US (occurrence: US)
  Receive Date: 20140915
  Receipt Date: 20140915
  Transmission Date: 20150326
  Serious: No
  Sender: FDA-Public Use
  Company Number: US-BRISTOL-MYERS SQUIBB COMPANY-21180716

PATIENT
  Age: 78 Year
  Sex: Female
  Weight: 62.58 kg

DRUGS (2)
  1. VALIUM [Concomitant]
     Active Substance: DIAZEPAM
  2. ELIQUIS [Suspect]
     Active Substance: APIXABAN
     Indication: CARDIAC ABLATION

REACTIONS (1)
  - Depression [Unknown]
